FAERS Safety Report 11662677 (Version 1)
Quarter: 2015Q4

REPORT INFORMATION
  Report Type: Spontaneous
  Country: US (occurrence: US)
  Receive Date: 20151027
  Receipt Date: 20151027
  Transmission Date: 20160304
  Serious: No
  Sender: FDA-Public Use
  Company Number: US-MEDA-2013030016

PATIENT
  Age: 23 Year
  Sex: Male
  Weight: 57 kg

DRUGS (17)
  1. DYMISTA [Suspect]
     Active Substance: AZELASTINE HYDROCHLORIDE\FLUTICASONE PROPIONATE
     Indication: SINUSITIS
     Dates: start: 20130226, end: 20130301
  2. MEDROL [Concomitant]
     Active Substance: METHYLPREDNISOLONE
     Dates: start: 20130226, end: 20130305
  3. BENADRYL [Concomitant]
     Active Substance: DIPHENHYDRAMINE HYDROCHLORIDE
     Route: 048
  4. DEPAKOTE [Concomitant]
     Active Substance: DIVALPROEX SODIUM
     Route: 048
  5. NEURONTIN [Concomitant]
     Active Substance: GABAPENTIN
     Route: 048
     Dates: start: 20130128, end: 20130227
  6. NEURONTIN [Concomitant]
     Active Substance: GABAPENTIN
     Route: 048
     Dates: start: 20130128
  7. CORTISPORIN [Concomitant]
     Active Substance: BACITRACIN ZINC\HYDROCORTISONE\NEOMYCIN SULFATE\POLYMYXIN B SULFATE
     Indication: EAR INFECTION
     Dates: start: 20130213, end: 20130304
  8. OMNICEF [Concomitant]
     Active Substance: CEFDINIR
     Indication: EAR INFECTION
     Dates: start: 20130220, end: 20130304
  9. DYMISTA [Suspect]
     Active Substance: AZELASTINE HYDROCHLORIDE\FLUTICASONE PROPIONATE
     Indication: EUSTACHIAN TUBE DYSFUNCTION
     Dates: start: 20130226, end: 20130301
  10. DYMISTA [Suspect]
     Active Substance: AZELASTINE HYDROCHLORIDE\FLUTICASONE PROPIONATE
     Indication: EAR INFECTION
     Dates: start: 20130226, end: 20130301
  11. INDOCIN [Concomitant]
     Active Substance: INDOMETHACIN\INDOMETHACIN SODIUM
     Route: 048
     Dates: start: 20130128, end: 20130227
  12. GEODON [Concomitant]
     Active Substance: ZIPRASIDONE HYDROCHLORIDE\ZIPRASIDONE MESYLATE
     Route: 048
  13. CLINDAMYCIN [Concomitant]
     Active Substance: CLINDAMYCIN\CLINDAMYCIN PHOSPHATE
     Indication: EAR INFECTION
     Route: 048
     Dates: start: 20130224, end: 20130304
  14. FLONASE [Concomitant]
     Active Substance: FLUTICASONE PROPIONATE
     Dates: end: 20130226
  15. XANAX [Concomitant]
     Active Substance: ALPRAZOLAM
     Route: 048
     Dates: start: 20130213
  16. AUGMENTIN [Concomitant]
     Active Substance: AMOXICILLIN\CLAVULANATE POTASSIUM
     Indication: EAR INFECTION
     Dates: start: 20130109, end: 20130304
  17. NEURONTIN [Concomitant]
     Active Substance: GABAPENTIN
     Route: 048
     Dates: start: 20130128

REACTIONS (4)
  - Burning sensation [Recovered/Resolved]
  - Chest pain [Recovered/Resolved]
  - Off label use [Recovered/Resolved]
  - Dyspnoea [Recovered/Resolved]

NARRATIVE: CASE EVENT DATE: 20130226
